FAERS Safety Report 8471086-2 (Version None)
Quarter: 2012Q2

REPORT INFORMATION
  Report Type: 
  Country: None (occurrence: None)
  Receive Date: 20120627
  Receipt Date: 20120423
  Transmission Date: 20120825
  Serious: No
  Sender: FDA-Public Use
  Company Number: US-GLAXOSMITHKLINE-A0974805A

PATIENT
  Age: 30 Year
  Sex: Female

DRUGS (5)
  1. ZYRTEC [Concomitant]
  2. JUNEL 1.5/30 [Concomitant]
  3. LEVOTHYROXINE [Concomitant]
  4. LAMICTAL [Suspect]
     Indication: BIPOLAR DISORDER
     Dosage: 450MG PER DAY
     Route: 048
     Dates: start: 20110201, end: 20120419
  5. HYDROXYZINE [Concomitant]

REACTIONS (2)
  - DRUG INTERACTION [None]
  - RASH [None]
